FAERS Safety Report 4745049-4 (Version None)
Quarter: 2005Q3

REPORT INFORMATION
  Report Type: 
  Country: None (occurrence: None)
  Receive Date: 20050812
  Receipt Date: 20050729
  Transmission Date: 20060218
  Serious: Yes (Death, Hospitalization)
  Sender: FDA-Public Use
  Company Number: 2005-0008330

PATIENT
  Age: 34 Year
  Sex: Female
  Weight: 83.5 kg

DRUGS (7)
  1. TENOFOVIR DISOPROXIL FUMARATE (TENOFOVIR DISOPROXIL FUMARATE) [Suspect]
     Indication: HIV INFECTION
     Dosage: 300 MG, 1 IN 1 D, ORAL
     Route: 048
     Dates: start: 20030904, end: 20040513
  2. TENOFOVIR DISOPROXIL FUMARATE (TENOFOVIR DISOPROXIL FUMARATE) [Suspect]
     Indication: HIV INFECTION
     Dosage: 300 MG, 1 IN 1 D, ORAL
     Route: 048
     Dates: start: 20040521, end: 20041208
  3. LAMIVUDINE [Suspect]
     Indication: HIV INFECTION
     Dosage: 150 MG, 2 IN 1 D
     Dates: start: 20040521, end: 20041208
  4. STAVUDINE [Concomitant]
     Indication: HIV INFECTION
     Dosage: 40 MG, 2 IN 1 D
     Dates: start: 20040521, end: 20041208
  5. AMITRIPTYLINE HCL [Concomitant]
  6. VITAMIN B COMPLEX (B-KOMPLEX ^LECIVA^) [Concomitant]
  7. DICLOFENAC SODIUM [Concomitant]

REACTIONS (9)
  - ANAEMIA [None]
  - BLOOD CREATINE PHOSPHOKINASE INCREASED [None]
  - BLOOD GLUCOSE DECREASED [None]
  - GENERAL PHYSICAL HEALTH DETERIORATION [None]
  - KETOACIDOSIS [None]
  - LACTIC ACIDOSIS [None]
  - MITOCHONDRIAL TOXICITY [None]
  - NAUSEA [None]
  - VOMITING [None]
